FAERS Safety Report 5186241-7 (Version None)
Quarter: 2006Q4

REPORT INFORMATION
  Report Type: 
  Country: None (occurrence: None)
  Receive Date: 20061213
  Receipt Date: 20061128
  Transmission Date: 20070319
  Serious: Yes (Hospitalization)
  Sender: FDA-Public Use
  Company Number: 2006BI014852

PATIENT
  Age: 41 Year
  Sex: Female
  Weight: 72.5755 kg

DRUGS (4)
  1. AVONEX [Suspect]
     Indication: MULTIPLE SCLEROSIS
     Dosage: 30 UG; QW; IM
     Route: 030
     Dates: start: 20060901
  2. CELEBREX [Concomitant]
  3. WELLBUTRIN [Concomitant]
  4. IBUPROFEN [Concomitant]

REACTIONS (4)
  - DEPRESSION [None]
  - DIARRHOEA [None]
  - FALLOPIAN TUBE ABSCESS [None]
  - WEIGHT DECREASED [None]
